FAERS Safety Report 14121653 (Version 2)
Quarter: 2017Q4

REPORT INFORMATION
  Report Type: Spontaneous
  Country: IT (occurrence: IT)
  Receive Date: 20171024
  Receipt Date: 20171101
  Transmission Date: 20180321
  Serious: Yes (Hospitalization)
  Sender: FDA-Public Use
  Company Number: IT-TEVA-818404ACC

PATIENT
  Age: 67 Year
  Sex: Female

DRUGS (4)
  1. EN [Suspect]
     Active Substance: DELORAZEPAM
     Indication: INSOMNIA
     Route: 048
  2. MIRTAZAPINE. [Suspect]
     Active Substance: MIRTAZAPINE
     Indication: DEPRESSION
     Route: 048
  3. DEPAKIN CHRONO SANOFI S.P.A. [Suspect]
     Active Substance: VALPROATE SODIUM
     Indication: BIPOLAR DISORDER
     Route: 048
  4. SERTRALINE [Suspect]
     Active Substance: SERTRALINE HYDROCHLORIDE
     Indication: DEPRESSION
     Route: 048

REACTIONS (5)
  - Hypotension [Recovering/Resolving]
  - Sopor [Recovering/Resolving]
  - Confusional state [Recovering/Resolving]
  - Poisoning [Recovering/Resolving]
  - Intentional self-injury [Recovering/Resolving]

NARRATIVE: CASE EVENT DATE: 20170207
